FAERS Safety Report 24442192 (Version 2)
Quarter: 2024Q4

REPORT INFORMATION
  Report Type: Report from Study
  Country: CL (occurrence: CL)
  Receive Date: 20241016
  Receipt Date: 20241017
  Transmission Date: 20250114
  Serious: No
  Sender: ROCHE
  Company Number: CL-ROCHE-3526022

PATIENT
  Age: 43 Year
  Sex: Female
  Weight: 93.0 kg

DRUGS (3)
  1. HEMLIBRA [Suspect]
     Active Substance: EMICIZUMAB-KXWH
     Indication: Haemophilia
     Dosage: DOSE WAS NOT REPORTED?105MG/0,7ML
     Route: 065
     Dates: start: 202307
  2. TRAMADOL [Concomitant]
     Active Substance: TRAMADOL
     Indication: Pain
     Dosage: DOSE WAS NOT REPORTED. FREQUENCY: SOS
     Dates: start: 2020
  3. NEFERSIL [Concomitant]

REACTIONS (9)
  - Hypervigilance [Unknown]
  - Injury [Recovered/Resolved]
  - Haemorrhage [Recovered/Resolved]
  - Fall [Unknown]
  - Skin abrasion [Recovered/Resolved]
  - Tooth disorder [Recovered/Resolved]
  - Tooth fracture [Recovered/Resolved]
  - Pain [Recovered/Resolved]
  - Discomfort [Recovered/Resolved]

NARRATIVE: CASE EVENT DATE: 20240101
